FAERS Safety Report 13422884 (Version 1)
Quarter: 2017Q2

REPORT INFORMATION
  Report Type: Spontaneous
  Country: AU (occurrence: AU)
  Receive Date: 20170410
  Receipt Date: 20170410
  Transmission Date: 20170830
  Serious: Yes (Hospitalization, Congenital Anomaly, Other)
  Sender: FDA-Public Use
  Company Number: AU-ROCHE-1917067

PATIENT
  Sex: Female

DRUGS (4)
  1. ALPRAZOLAM. [Interacting]
     Active Substance: ALPRAZOLAM
     Indication: PRODUCT USED FOR UNKNOWN INDICATION
     Dosage: 1-2 MG DAILY
     Route: 064
  2. TRANYLCYPROMINE [Interacting]
     Active Substance: TRANYLCYPROMINE
     Indication: PRODUCT USED FOR UNKNOWN INDICATION
     Dosage: BETWEEN 100 MG AND 130 MG DAILY
     Route: 064
  3. PIMOZIDE. [Interacting]
     Active Substance: PIMOZIDE
     Indication: PRODUCT USED FOR UNKNOWN INDICATION
     Dosage: 1-2 MG DAILY
     Route: 064
  4. DIAZEPAM. [Suspect]
     Active Substance: DIAZEPAM
     Indication: PRODUCT USED FOR UNKNOWN INDICATION
     Dosage: 5-10 MG DAILY
     Route: 064

REACTIONS (30)
  - Anomaly of external ear congenital [Unknown]
  - Optic atrophy [Unknown]
  - Developmental delay [Unknown]
  - Abasia [Unknown]
  - Craniosynostosis [Unknown]
  - Foetal exposure during pregnancy [Unknown]
  - Respiratory distress [Unknown]
  - Dysmorphism [Unknown]
  - Cleft palate [Unknown]
  - Abdominal distension [Unknown]
  - Ventricular septal defect [Unknown]
  - Deafness neurosensory [Unknown]
  - Congenital anomaly [Unknown]
  - Atrioventricular septal defect [Unknown]
  - Arnold-Chiari malformation [Unknown]
  - Drug interaction [Unknown]
  - Feeding intolerance [Unknown]
  - Necrotising colitis [Unknown]
  - Ill-defined disorder [Unknown]
  - Atrial septal defect [Unknown]
  - Hypertelorism of orbit [Unknown]
  - Foetal growth restriction [Unknown]
  - Patent ductus arteriosus [Unknown]
  - Hypermobility syndrome [Unknown]
  - Congenital nose malformation [Unknown]
  - Phalangeal hypoplasia [Unknown]
  - Congenital central nervous system anomaly [Unknown]
  - Skin discolouration [Unknown]
  - Low set ears [Unknown]
  - Exposure during breast feeding [Unknown]
